FAERS Safety Report 10248952 (Version 1)
Quarter: 2014Q2

REPORT INFORMATION
  Report Type: Spontaneous
  Country: US (occurrence: None)
  Receive Date: 20140619
  Receipt Date: 20140619
  Transmission Date: 20141212
  Serious: Yes (Other)
  Sender: FDA-Public Use
  Company Number: None

PATIENT
  Age: 56 Year
  Sex: Female

DRUGS (21)
  1. TYSABRI [Suspect]
     Indication: MULTIPLE SCLEROSIS
     Dates: start: 201206
  2. TYSABRI [Concomitant]
  3. GABAPENTIN [Concomitant]
  4. BENTYL [Concomitant]
  5. VITAMIN D [Concomitant]
  6. METOPROLOL [Concomitant]
  7. AMBIEN [Concomitant]
  8. OMEPRAZOLE [Concomitant]
  9. CYMBALTA [Concomitant]
  10. CELEXA [Concomitant]
  11. TRAMADOL [Concomitant]
  12. FLONASE [Concomitant]
  13. FLOVENT [Concomitant]
  14. BACK BRACE [Concomitant]
  15. DIFLUCAN [Concomitant]
  16. VOLTAREN [Concomitant]
  17. ACYCLOVIR [Concomitant]
  18. CRANBERRY PILLS [Concomitant]
  19. GLUCOSAMINE [Concomitant]
  20. MULTIDOPHILUS [Concomitant]
  21. BENEFIBER [Concomitant]

REACTIONS (4)
  - Dyspepsia [None]
  - Gastrooesophageal reflux disease [None]
  - Flatulence [None]
  - Renal mass [None]
